FAERS Safety Report 25991475 (Version 1)
Quarter: 2025Q4

REPORT INFORMATION
  Report Type: Spontaneous
  Country: US (occurrence: US)
  Receive Date: 20251103
  Receipt Date: 20251103
  Transmission Date: 20260117
  Serious: No
  Sender: SANOFI AVENTIS
  Company Number: US-SA-2025SA317566

PATIENT
  Age: 60 Year
  Sex: Female

DRUGS (1)
  1. XENPOZYME [Suspect]
     Active Substance: OLIPUDASE ALFA-RPCP
     Indication: Niemann-Pick disease
     Dosage: 228 MG (11 VIALS OF 20MG AND 2 VIALS OF 4MG) , QOW
     Route: 042
     Dates: start: 202403

REACTIONS (2)
  - Neck pain [Unknown]
  - Myalgia [Unknown]
